FAERS Safety Report 5096599-5 (Version None)
Quarter: 2006Q3

REPORT INFORMATION
  Report Type: 
  Country: None (occurrence: None)
  Receive Date: 20060831
  Receipt Date: 20060822
  Transmission Date: 20061208
  Serious: Yes (Hospitalization, Other)
  Sender: FDA-Public Use
  Company Number: HQWYE040620MAY04

PATIENT
  Age: 67 Year
  Sex: Female
  Weight: 59.02 kg

DRUGS (4)
  1. PREMARIN [Suspect]
     Indication: OESTROGEN REPLACEMENT THERAPY
     Dates: start: 19940101, end: 19960101
  2. ESTRACE [Suspect]
     Indication: HORMONE REPLACEMENT THERAPY
  3. PREMPRO [Suspect]
     Indication: HORMONE REPLACEMENT THERAPY
     Dosage: ORAL
     Route: 048
     Dates: start: 19960101, end: 20020101
  4. PROVERA [Suspect]
     Dates: start: 19960101, end: 20020101

REACTIONS (21)
  - ARTHRITIS [None]
  - BENIGN BREAST NEOPLASM [None]
  - BREAST CANCER FEMALE [None]
  - BREAST CANCER IN SITU [None]
  - BREAST CANCER METASTATIC [None]
  - BREAST FIBROSIS [None]
  - BREAST NECROSIS [None]
  - COMPUTERISED TOMOGRAM THORAX ABNORMAL [None]
  - FAT NECROSIS [None]
  - FIBROADENOMA OF BREAST [None]
  - FOREIGN BODY TRAUMA [None]
  - GRANULOMA [None]
  - HAEMORRHAGE [None]
  - HAEMOSIDEROSIS [None]
  - HEPATIC LESION [None]
  - LUNG DISORDER [None]
  - MASTITIS [None]
  - METASTASES TO LYMPH NODES [None]
  - OESTROGEN RECEPTOR ASSAY POSITIVE [None]
  - PROGESTERONE RECEPTOR ASSAY POSITIVE [None]
  - SCAR [None]
